FAERS Safety Report 21510418 (Version 1)
Quarter: 2022Q4

REPORT INFORMATION
  Report Type: Report from Study
  Country: US (occurrence: US)
  Receive Date: 20221026
  Receipt Date: 20221026
  Transmission Date: 20230112
  Serious: Yes (Other)
  Sender: FDA-Public Use
  Company Number: US-JAZZ-2022-US-005180

PATIENT
  Age: 25 Year
  Sex: Female

DRUGS (7)
  1. XYREM [Suspect]
     Active Substance: SODIUM OXYBATE
     Indication: Narcolepsy
     Dosage: 4 GRAM, BID
     Route: 048
  2. XYREM [Suspect]
     Active Substance: SODIUM OXYBATE
     Indication: Cataplexy
     Dosage: 4.25 GRAM, BID
  3. XYREM [Suspect]
     Active Substance: SODIUM OXYBATE
     Indication: Somnolence
     Dosage: 4.25G AT BEDTIME, 2.25G 2.5-4 HOURS LATER AND 2G 2.5-4 HOURS AFTER SECOND DOSE
  4. HUMIRA [Suspect]
     Active Substance: ADALIMUMAB
     Indication: Product used for unknown indication
  5. RITALIN [Suspect]
     Active Substance: METHYLPHENIDATE HYDROCHLORIDE
     Indication: Product used for unknown indication
  6. ZYRTEC [Concomitant]
     Active Substance: CETIRIZINE HYDROCHLORIDE
     Indication: Product used for unknown indication
     Dosage: UNK
     Dates: start: 20211014
  7. QNASL [Concomitant]
     Active Substance: BECLOMETHASONE DIPROPIONATE
     Indication: Product used for unknown indication
     Dosage: UNK
     Dates: start: 20220213

REACTIONS (14)
  - Psoriatic arthropathy [Unknown]
  - Illness [Unknown]
  - Musculoskeletal stiffness [Unknown]
  - Malaise [Unknown]
  - Cough [Unknown]
  - Hyperhidrosis [Unknown]
  - Headache [Unknown]
  - Amnesia [Unknown]
  - Anxiety [Unknown]
  - Fatigue [Unknown]
  - Anger [Unknown]
  - Feeling abnormal [Unknown]
  - Drug ineffective [Unknown]
  - Product administration interrupted [Unknown]

NARRATIVE: CASE EVENT DATE: 20180101
